FAERS Safety Report 22004288 (Version 2)
Quarter: 2023Q1

REPORT INFORMATION
  Report Type: Report from Study
  Country: FR (occurrence: FR)
  Receive Date: 20230217
  Receipt Date: 20230220
  Transmission Date: 20230418
  Serious: Yes (Death, Other)
  Sender: FDA-Public Use
  Company Number: FR-002147023-NVSC2023FR034876

PATIENT
  Sex: Male
  Weight: 81 kg

DRUGS (6)
  1. PLUVICTO [Suspect]
     Active Substance: LUTETIUM LU-177 VIPIVOTIDE TETRAXETAN
     Indication: Prostate cancer
     Dosage: 7419 MBQ, ONCE (1 CYCLE)
     Route: 065
     Dates: start: 20220822, end: 20220822
  2. PLUVICTO [Suspect]
     Active Substance: LUTETIUM LU-177 VIPIVOTIDE TETRAXETAN
     Dosage: 7447 MBQ, ONCE (2 CYCLE)
     Route: 065
     Dates: start: 20221003, end: 20221003
  3. PLUVICTO [Suspect]
     Active Substance: LUTETIUM LU-177 VIPIVOTIDE TETRAXETAN
     Dosage: 7338 MBQ, ONCE (3 CYCLE)
     Route: 065
     Dates: start: 20221116, end: 20221116
  4. PLUVICTO [Suspect]
     Active Substance: LUTETIUM LU-177 VIPIVOTIDE TETRAXETAN
     Dosage: 7078 MBQ, ONCE (4 CYCLE)
     Route: 065
     Dates: start: 20221230, end: 20221230
  5. PLUVICTO [Suspect]
     Active Substance: LUTETIUM LU-177 VIPIVOTIDE TETRAXETAN
     Dosage: 7391 MBQ, ONCE (5 CYCLE)
     Route: 065
     Dates: start: 20230208, end: 20230208
  6. DENOSUMAB [Concomitant]
     Active Substance: DENOSUMAB
     Indication: Product used for unknown indication
     Dosage: UNK (DECREASED)
     Route: 065
     Dates: start: 20221208

REACTIONS (3)
  - Cerebral haemorrhage [Fatal]
  - Prostate cancer [Unknown]
  - Malignant neoplasm progression [Unknown]
